FAERS Safety Report 12225602 (Version 1)
Quarter: 2016Q1

REPORT INFORMATION
  Report Type: Spontaneous
  Country: IN (occurrence: None)
  Receive Date: 20160330
  Receipt Date: 20160330
  Transmission Date: 20160526
  Serious: Yes (Other)
  Sender: FDA-Public Use
  Company Number: None

PATIENT
  Age: 21 Year
  Sex: Male
  Weight: 84 kg

DRUGS (1)
  1. NICOTEX, 4 MG CIPLA [Suspect]
     Active Substance: NICOTINE
     Indication: SMOKING CESSATION THERAPY
     Dosage: 1 TABLET ONCE A DAY TAKEN UNDER THE TONGUE

REACTIONS (4)
  - Accidental exposure to product [None]
  - Nightmare [None]
  - Middle insomnia [None]
  - Incorrect route of drug administration [None]

NARRATIVE: CASE EVENT DATE: 20160301
